FAERS Safety Report 12526617 (Version 1)
Quarter: 2016Q3

REPORT INFORMATION
  Report Type: Spontaneous
  Country: US (occurrence: US)
  Receive Date: 20160705
  Receipt Date: 20160705
  Transmission Date: 20161109
  Serious: No
  Sender: FDA-Public Use
  Company Number: US-ENDO PHARMACEUTICALS INC.-2015-002122

PATIENT
  Age: 73 Year
  Sex: Female
  Weight: 69.46 kg

DRUGS (2)
  1. NYSTATIN SUSPENSION [Suspect]
     Active Substance: NYSTATIN
     Indication: OROPHARYNGEAL PAIN
     Route: 048
  2. NYSTATIN SUSPENSION [Suspect]
     Active Substance: NYSTATIN
     Indication: DRY MOUTH

REACTIONS (1)
  - Drug ineffective [Unknown]
